FAERS Safety Report 8882624 (Version 1)
Quarter: 2012Q4

REPORT INFORMATION
  Report Type: 
  Country: CA (occurrence: CA)
  Receive Date: 20121104
  Receipt Date: 20121104
  Transmission Date: 20130627
  Serious: Yes (Hospitalization)
  Sender: FDA-Public Use
  Company Number: PHMT2006CA02142

PATIENT
  Sex: Male

DRUGS (9)
  1. ZOMETA [Suspect]
     Indication: PROSTATE CANCER
     Dosage: 4.0 mg, every 12 weeks
     Route: 042
     Dates: start: 20060221
  2. ALTACE [Concomitant]
  3. ATENOLOL [Concomitant]
  4. ASPIRIN ENTERIC COATED K.P. [Concomitant]
  5. FLEET /UNK/ [Concomitant]
  6. OXYCODONE [Concomitant]
  7. SENNOSIDE [Concomitant]
  8. TYLENOL [Concomitant]
  9. ATORVASTATIN [Concomitant]

REACTIONS (2)
  - Intestinal obstruction [Unknown]
  - Fatigue [Unknown]
